FAERS Safety Report 23306914 (Version 2)
Quarter: 2024Q1

REPORT INFORMATION
  Report Type: Spontaneous
  Country: US (occurrence: US)
  Receive Date: 20231218
  Receipt Date: 20240109
  Transmission Date: 20240410
  Serious: Yes (Other)
  Sender: FDA-Public Use
  Company Number: US-LUPIN PHARMACEUTICALS INC.-2023-11313

PATIENT
  Age: 64 Year
  Sex: Male

DRUGS (3)
  1. POLYETHYLENE GLYCOL [Suspect]
     Active Substance: POLYETHYLENE GLYCOL
     Indication: Constipation
     Dosage: UNK
     Route: 048
  2. SENNA [Concomitant]
     Active Substance: SENNA LEAF\SENNOSIDES\SENNOSIDES A AND B
     Indication: Constipation
     Dosage: UNK
     Route: 065
  3. SHARK LIVER OIL [Concomitant]
     Active Substance: SHARK LIVER OIL
     Indication: Constipation
     Dosage: UNK
     Route: 065

REACTIONS (1)
  - Pneumonia lipoid [Not Recovered/Not Resolved]
